FAERS Safety Report 16107394 (Version 4)
Quarter: 2019Q2

REPORT INFORMATION
  Report Type: Spontaneous
  Country: JP (occurrence: JP)
  Receive Date: 20190322
  Receipt Date: 20190416
  Transmission Date: 20190711
  Serious: Yes (Death)
  Sender: FDA-Public Use
  Company Number: JP-JNJFOC-20190331431

PATIENT
  Age: 71 Year
  Sex: Female
  Weight: 52 kg

DRUGS (2)
  1. REMICADE [Suspect]
     Active Substance: INFLIXIMAB
     Indication: PRODUCT USED FOR UNKNOWN INDICATION
     Route: 042
     Dates: start: 20090422, end: 20181023
  2. PREDNISOLONE. [Concomitant]
     Active Substance: PREDNISOLONE
     Indication: CROHN^S DISEASE
     Route: 042

REACTIONS (2)
  - Lupus-like syndrome [Fatal]
  - Drug level below therapeutic [Unknown]
